FAERS Safety Report 9171631 (Version 3)
Quarter: 2013Q2

REPORT INFORMATION
  Report Type: Spontaneous
  Country: JP (occurrence: JP)
  Receive Date: 20130319
  Receipt Date: 20130418
  Transmission Date: 20140414
  Serious: Yes (Other)
  Sender: FDA-Public Use
  Company Number: JP-GLAXOSMITHKLINE-B0875183A

PATIENT
  Age: 33 Year
  Sex: Female

DRUGS (5)
  1. PAXIL [Suspect]
     Indication: PANIC DISORDER
     Dosage: 12.5MG PER DAY
     Route: 048
     Dates: start: 20120910
  2. LAMICTAL [Suspect]
     Indication: AFFECTIVE DISORDER
     Dosage: 25MG PER DAY
     Route: 048
     Dates: start: 20130310, end: 20130310
  3. CONSTAN [Concomitant]
     Indication: ANXIETY
     Dosage: .4MG PER DAY
     Route: 048
     Dates: start: 20120910
  4. CONSTAN [Concomitant]
     Indication: ANXIETY
     Route: 048
     Dates: start: 20120910
  5. WYPAX [Concomitant]
     Indication: ANXIETY
     Route: 048
     Dates: start: 20120910, end: 20120924

REACTIONS (6)
  - Depressed level of consciousness [Recovered/Resolved]
  - Dysarthria [Recovered/Resolved]
  - Dizziness [Recovered/Resolved]
  - Sedation [Recovered/Resolved]
  - Staring [Unknown]
  - Dizziness [Recovering/Resolving]
